FAERS Safety Report 9738410 (Version 2)
Quarter: 2013Q4

REPORT INFORMATION
  Report Type: Report from Study
  Country: BR (occurrence: BR)
  Receive Date: 20131208
  Receipt Date: 20131208
  Transmission Date: 20140711
  Serious: Yes (Other)
  Sender: FDA-Public Use
  Company Number: BR-ROCHE-768140

PATIENT
  Age: 61 Year
  Sex: Female
  Weight: 91 kg

DRUGS (4)
  1. MABTHERA [Suspect]
     Indication: RHEUMATOID ARTHRITIS
     Route: 065
  2. PREDNISONE [Suspect]
     Indication: THROMBOCYTOPENIA
     Route: 065
  3. AMLODIPINE [Concomitant]
  4. OMEPRAZOLE [Concomitant]

REACTIONS (4)
  - Depression [Recovering/Resolving]
  - Thrombosis [Recovering/Resolving]
  - Weight decreased [Unknown]
  - Influenza [Recovered/Resolved]
